FAERS Safety Report 7249225-0 (Version None)
Quarter: 2011Q1

REPORT INFORMATION
  Report Type: 
  Country: None (occurrence: None)
  Receive Date: 20110128
  Receipt Date: 20110119
  Transmission Date: 20110831
  Serious: Yes (Hospitalization, Other)
  Sender: FDA-Public Use
  Company Number: TW-JNJFOC-20110106157

PATIENT
  Age: 44 Year
  Sex: Male

DRUGS (35)
  1. HALOPERIDOL [Suspect]
     Indication: AFFECT LABILITY
     Dosage: FOR 3 DAYS
     Route: 048
  2. HALOPERIDOL [Suspect]
     Route: 030
  3. CLONAZEPAM [Suspect]
     Indication: AGITATION
     Route: 065
  4. HALOPERIDOL [Suspect]
     Route: 048
  5. HALOPERIDOL [Suspect]
     Indication: AGITATION
     Route: 048
  6. HALOPERIDOL [Suspect]
     Route: 048
  7. VALPROATE SODIUM [Suspect]
     Route: 065
  8. VALPROATE SODIUM [Suspect]
     Route: 065
  9. CLONAZEPAM [Suspect]
     Route: 065
  10. HALOPERIDOL [Suspect]
     Indication: HALLUCINATION, AUDITORY
     Route: 048
  11. VALPROATE SODIUM [Suspect]
     Route: 065
  12. CLONAZEPAM [Suspect]
     Route: 065
  13. CLONAZEPAM [Suspect]
     Route: 065
  14. HALOPERIDOL [Suspect]
     Dosage: FOR 3 DAYS
     Route: 048
  15. HALOPERIDOL [Suspect]
     Route: 030
  16. VALPROATE SODIUM [Suspect]
     Indication: AGITATION
     Route: 065
  17. VALPROATE SODIUM [Suspect]
     Route: 065
  18. CLONAZEPAM [Suspect]
     Route: 065
  19. HALOPERIDOL [Suspect]
     Route: 048
  20. VALPROATE SODIUM [Suspect]
     Indication: AFFECT LABILITY
     Route: 065
  21. VALPROATE SODIUM [Suspect]
     Route: 065
  22. VALPROATE SODIUM [Suspect]
     Route: 065
  23. VALPROATE SODIUM [Suspect]
     Route: 065
  24. CLONAZEPAM [Suspect]
     Indication: HALLUCINATION, AUDITORY
     Route: 065
  25. CLONAZEPAM [Suspect]
     Route: 065
  26. HALOPERIDOL [Suspect]
     Dosage: FOR 3 DAYS
     Route: 048
  27. VALPROATE SODIUM [Suspect]
     Route: 065
  28. CLONAZEPAM [Suspect]
     Indication: AFFECT LABILITY
     Route: 065
  29. ZOTEPINE [Suspect]
     Route: 065
  30. HALOPERIDOL [Suspect]
     Route: 048
  31. HALOPERIDOL [Suspect]
     Route: 030
  32. VALPROATE SODIUM [Suspect]
     Route: 065
  33. VALPROATE SODIUM [Suspect]
     Indication: HALLUCINATION, AUDITORY
     Route: 065
  34. CLONAZEPAM [Suspect]
     Route: 065
  35. ZOTEPINE [Suspect]
     Indication: AGITATION
     Route: 065

REACTIONS (5)
  - DELIRIUM [None]
  - ENCEPHALOPATHY [None]
  - HEPATIC ENZYME INCREASED [None]
  - HYPERHIDROSIS [None]
  - EXTRAPYRAMIDAL DISORDER [None]
